FAERS Safety Report 25166640 (Version 2)
Quarter: 2025Q2

REPORT INFORMATION
  Report Type: Spontaneous
  Country: DE (occurrence: DE)
  Receive Date: 20250407
  Receipt Date: 20250530
  Transmission Date: 20250716
  Serious: Yes (Other)
  Sender: MERCK SHARP & DOHME LLC
  Company Number: DE-009507513-2270914

PATIENT
  Age: 38 Year
  Sex: Female
  Weight: 72 kg

DRUGS (16)
  1. WINREVAIR [Suspect]
     Active Substance: SOTATERCEPT-CSRK
     Indication: Pulmonary hypertension
     Route: 058
     Dates: start: 20250319
  2. WINREVAIR [Suspect]
     Active Substance: SOTATERCEPT-CSRK
  3. WINREVAIR [Suspect]
     Active Substance: SOTATERCEPT-CSRK
  4. WINREVAIR [Suspect]
     Active Substance: SOTATERCEPT-CSRK
  5. APIXABAN [Concomitant]
     Active Substance: APIXABAN
     Route: 048
  6. Budesonid Retard-Tbl [Concomitant]
     Route: 048
  7. MESALAMINE [Concomitant]
     Active Substance: MESALAMINE
  8. MACITENTAN [Concomitant]
     Active Substance: MACITENTAN
  9. TORSEMIDE [Concomitant]
     Active Substance: TORSEMIDE
  10. SPIRONOLACTONE [Concomitant]
     Active Substance: SPIRONOLACTONE
     Route: 048
  11. AMLODIPINE BESYLATE [Concomitant]
     Active Substance: AMLODIPINE BESYLATE
  12. CHOLECALCIFEROL [Concomitant]
     Active Substance: CHOLECALCIFEROL
     Route: 048
  13. POTASSIUM CHLORIDE [Concomitant]
     Active Substance: POTASSIUM CHLORIDE
     Route: 048
  14. DESOGESTREL [Concomitant]
     Active Substance: DESOGESTREL
     Route: 048
  15. SILDENAFIL [Concomitant]
     Active Substance: SILDENAFIL
     Route: 048
  16. Sevelamer hydrochlorid [Concomitant]
     Route: 048

REACTIONS (1)
  - Sudden hearing loss [Recovered/Resolved]

NARRATIVE: CASE EVENT DATE: 20250321
